FAERS Safety Report 9337609 (Version 2)
Quarter: 2013Q3

REPORT INFORMATION
  Report Type: Spontaneous
  Country: US (occurrence: US)
  Receive Date: 20130607
  Receipt Date: 20130801
  Transmission Date: 20140515
  Serious: Yes (Other)
  Sender: FDA-Public Use
  Company Number: US-ALLERGAN-1307984US

PATIENT
  Age: 80 Year
  Sex: Female

DRUGS (8)
  1. COMBIGAN[R] [Suspect]
     Indication: GLAUCOMA
     Dosage: 2 GTT, BID
     Route: 047
     Dates: start: 2012, end: 20130525
  2. VENTOLIN [Concomitant]
     Indication: ASTHMA
     Dosage: UNK UNK, PRN
     Route: 048
  3. ADVAIR [Concomitant]
     Indication: ASTHMA
     Dosage: UNK UNK, QD
     Route: 048
  4. HAWTHORN [Concomitant]
     Indication: CARDIAC DISORDER
     Dosage: UNK
     Route: 048
  5. ARJUNA (HERB) NOS [Concomitant]
     Indication: CARDIAC DISORDER
     Dosage: UNK
     Route: 048
  6. HERBS NOS [Concomitant]
     Indication: CARDIAC DISORDER
     Dosage: UNK
     Route: 048
  7. HERBS NOS [Concomitant]
     Indication: CARDIOVASCULAR DISORDER
  8. WATER DROPS NOS [Concomitant]
     Indication: DRY EYE
     Dosage: UNK
     Route: 047

REACTIONS (2)
  - Angina pectoris [Unknown]
  - Ejection fraction decreased [Unknown]
